FAERS Safety Report 21000891 (Version 13)
Quarter: 2022Q4

REPORT INFORMATION
  Report Type: Spontaneous
  Country: US (occurrence: US)
  Receive Date: 20220624
  Receipt Date: 20221226
  Transmission Date: 20230113
  Serious: Yes (Other)
  Sender: FDA-Public Use
  Company Number: US-BoehringerIngelheim-2022-BI-178141

PATIENT
  Age: 76 Year
  Sex: Male

DRUGS (2)
  1. PRADAXA [Suspect]
     Active Substance: DABIGATRAN ETEXILATE MESYLATE
     Indication: Cerebrovascular accident prophylaxis
     Dosage: LOT NO: 202229, 202233, 203510
     Dates: start: 20200828
  2. PRADAXA [Suspect]
     Active Substance: DABIGATRAN ETEXILATE MESYLATE
     Indication: Atrial fibrillation

REACTIONS (10)
  - Atrial fibrillation [Not Recovered/Not Resolved]
  - Angina pectoris [Not Recovered/Not Resolved]
  - Dizziness [Not Recovered/Not Resolved]
  - Varicose vein [Not Recovered/Not Resolved]
  - Headache [Not Recovered/Not Resolved]
  - Product quality issue [Unknown]
  - Atrial fibrillation [Recovered/Resolved]
  - Angina pectoris [Recovered/Resolved]
  - Dizziness [Recovered/Resolved]
  - Varicose vein [Recovered/Resolved]

NARRATIVE: CASE EVENT DATE: 20220101
